FAERS Safety Report 9227328 (Version 1)
Quarter: 2013Q2

REPORT INFORMATION
  Report Type: Spontaneous
  Country: US (occurrence: None)
  Receive Date: 20130411
  Receipt Date: 20130411
  Transmission Date: 20140414
  Serious: Yes (Hospitalization)
  Sender: FDA-Public Use
  Company Number: None

PATIENT
  Age: 76 Year
  Sex: Male
  Weight: 69.5 kg

DRUGS (1)
  1. ASA [Suspect]
     Indication: PROPHYLAXIS
     Dosage: CHRONIC USE 81 MG X2 QAM PO
     Route: 048

REACTIONS (3)
  - Abdominal discomfort [None]
  - Erosive oesophagitis [None]
  - Upper gastrointestinal haemorrhage [None]
